FAERS Safety Report 7348209-1 (Version None)
Quarter: 2011Q1

REPORT INFORMATION
  Report Type: 
  Country: None (occurrence: None)
  Receive Date: 20110311
  Receipt Date: 20110124
  Transmission Date: 20110831
  Serious: No
  Sender: FDA-Public Use
  Company Number: US-BAYER-2011-008419

PATIENT
  Sex: Female
  Weight: 91 kg

DRUGS (2)
  1. ALEVE (CAPLET) [Suspect]
     Indication: DYSMENORRHOEA
     Dosage: BOTTLE COUNT 24S
     Route: 048
  2. ALEVE (CAPLET) [Suspect]
     Indication: BACK PAIN

REACTIONS (2)
  - BACK PAIN [None]
  - DYSMENORRHOEA [None]
